FAERS Safety Report 8988002 (Version 1)
Quarter: 2012Q4

REPORT INFORMATION
  Report Type: 
  Country: BR (occurrence: BR)
  Receive Date: 20121227
  Receipt Date: 20121227
  Transmission Date: 20130627
  Serious: Yes (Other)
  Sender: FDA-Public Use
  Company Number: BR-COVIDIEN/TYCO HEALTHCARE/MALLINCKRODT-T201204399

PATIENT
  Age: 32 Year
  Sex: Female

DRUGS (1)
  1. OPTIRAY [Suspect]
     Indication: COMPUTERISED TOMOGRAM
     Dosage: 100 ml, single
     Route: 042
     Dates: start: 20121122, end: 20121122

REACTIONS (3)
  - Aphasia [Recovered/Resolved]
  - Cough [Recovered/Resolved]
  - Dyspnoea [Recovered/Resolved]
